FAERS Safety Report 7686517-5 (Version None)
Quarter: 2011Q3

REPORT INFORMATION
  Report Type: 
  Country: None (occurrence: None)
  Receive Date: 20110816
  Receipt Date: 20110803
  Transmission Date: 20111222
  Serious: Yes (Other)
  Sender: FDA-Public Use
  Company Number: DK-WATSON-2011-12696

PATIENT

DRUGS (1)
  1. TERBINAFINE HCL [Suspect]
     Indication: PRODUCT USED FOR UNKNOWN INDICATION
     Dosage: UNKNOWN

REACTIONS (17)
  - AGEUSIA [None]
  - GASTROINTESTINAL DISORDER [None]
  - CUTANEOUS LUPUS ERYTHEMATOSUS [None]
  - DERMATITIS EXFOLIATIVE [None]
  - MENTAL DISORDER [None]
  - BLOOD DISORDER [None]
  - CARDIOVASCULAR DISORDER [None]
  - CONGENITAL ANOMALY [None]
  - METABOLIC DISORDER [None]
  - SKIN DISORDER [None]
  - GENERAL SYMPTOM [None]
  - INFECTION [None]
  - ERYTHEMA MULTIFORME [None]
  - TOXIC EPIDERMAL NECROLYSIS [None]
  - HEPATOBILIARY DISEASE [None]
  - HEPATIC ENZYME ABNORMAL [None]
  - RESPIRATORY DISORDER [None]
